FAERS Safety Report 5599672-8 (Version None)
Quarter: 2008Q1

REPORT INFORMATION
  Report Type: 
  Country: None (occurrence: None)
  Receive Date: 20080123
  Receipt Date: 20080114
  Transmission Date: 20080703
  Serious: Yes (Hospitalization, Other)
  Sender: FDA-Public Use
  Company Number: FR-BRISTOL-MYERS SQUIBB COMPANY-14040877

PATIENT
  Age: 14 Day
  Sex: Female

DRUGS (3)
  1. LOPRIL [Suspect]
     Indication: BLOOD PRESSURE INADEQUATELY CONTROLLED
     Dates: start: 20071116, end: 20071119
  2. LASIX [Suspect]
     Dates: start: 20071108, end: 20071114
  3. LOXEN [Suspect]
     Indication: BLOOD PRESSURE INADEQUATELY CONTROLLED
     Dates: start: 20071108

REACTIONS (1)
  - PULMONARY OEDEMA [None]
